FAERS Safety Report 20153063 (Version 3)
Quarter: 2022Q1

REPORT INFORMATION
  Report Type: Report from Study
  Country: ES (occurrence: ES)
  Receive Date: 20211206
  Receipt Date: 20220104
  Transmission Date: 20220424
  Serious: Yes (Hospitalization)
  Sender: FDA-Public Use
  Company Number: ES-BRISTOL-MYERS SQUIBB COMPANY-BMS-2021-126965

PATIENT
  Age: 60 Year
  Sex: Male
  Weight: 82 kg

DRUGS (5)
  1. NIVOLUMAB [Suspect]
     Active Substance: NIVOLUMAB
     Indication: Squamous cell carcinoma of lung
     Dosage: 480 MILLIGRAM, Q4WK
     Route: 041
     Dates: start: 20210729, end: 20211118
  2. PULRODEMSTAT BESILATE [Suspect]
     Active Substance: PULRODEMSTAT BESILATE
     Indication: Squamous cell carcinoma of lung
     Dosage: 40 MILLIGRAM, QWK
     Route: 048
     Dates: start: 20210729, end: 20211118
  3. LEVOTHYROXINE SODIUM [Concomitant]
     Active Substance: LEVOTHYROXINE SODIUM
     Indication: Hypothyroidism
     Dosage: 125 MICROGRAM, QD
     Route: 048
     Dates: start: 20210812
  4. FAMOTIDINA [Concomitant]
     Indication: Hypothyroidism
     Dosage: UNK
     Route: 048
     Dates: start: 20190923
  5. HYDROCORTISONE [Concomitant]
     Active Substance: HYDROCORTISONE
     Indication: Prophylaxis
     Dosage: 10 MILLIGRAM, BID
     Route: 048

REACTIONS (2)
  - Pyrexia [Recovering/Resolving]
  - Vomiting [Recovered/Resolved]

NARRATIVE: CASE EVENT DATE: 20211123
